FAERS Safety Report 8078023-3 (Version None)
Quarter: 2012Q1

REPORT INFORMATION
  Report Type: 
  Country: None (occurrence: None)
  Receive Date: 20120127
  Receipt Date: 20110106
  Transmission Date: 20120608
  Serious: No
  Sender: FDA-Public Use
  Company Number: US-ABBOTT-11P-163-0695854-00

PATIENT
  Sex: Female

DRUGS (2)
  1. UNKNOWN MEDICATION [Concomitant]
     Indication: PAIN
  2. HUMIRA [Suspect]
     Indication: CROHN'S DISEASE
     Dates: start: 20070101

REACTIONS (3)
  - SINUS CONGESTION [None]
  - HEADACHE [None]
  - NASOPHARYNGITIS [None]
